FAERS Safety Report 9402668 (Version 2)
Quarter: 2013Q3

REPORT INFORMATION
  Report Type: Report from Study
  Country: FR (occurrence: FR)
  Receive Date: 20130716
  Receipt Date: 20130809
  Transmission Date: 20140515
  Serious: Yes (Other)
  Sender: FDA-Public Use
  Company Number: FR-CELGENEUS-056-21880-13071969

PATIENT
  Age: 84 Year
  Sex: 0

DRUGS (3)
  1. REVLIMID [Suspect]
     Indication: MYELODYSPLASTIC SYNDROME
     Dosage: 10 MILLIGRAM
     Route: 048
     Dates: start: 20110301, end: 20110315
  2. REVLIMID [Suspect]
     Dosage: 5 MILLIGRAM
     Route: 048
     Dates: start: 20110316, end: 20110321
  3. REVLIMID [Suspect]
     Route: 048
     Dates: start: 20110419

REACTIONS (2)
  - Crohn^s disease [Recovered/Resolved]
  - Haematotoxicity [Recovered/Resolved]
